FAERS Safety Report 8675519 (Version 4)
Quarter: 2013Q1

REPORT INFORMATION
  Report Type: Spontaneous
  Country: US (occurrence: US)
  Receive Date: 20120720
  Receipt Date: 20130118
  Transmission Date: 20140127
  Serious: No
  Sender: FDA-Public Use
  Company Number: US-009507513-1207USA005269

PATIENT
  Age: 48 None
  Sex: Male

DRUGS (7)
  1. PEGINTRON [Suspect]
     Indication: CHRONIC HEPATITIS C
     Dosage: 150 MICROGRAM, QW
     Route: 058
     Dates: start: 201207, end: 20121031
  2. TELAPREVIR [Suspect]
  3. RIBAPAK [Suspect]
  4. RIBASPHERE [Suspect]
  5. CELEBREX [Concomitant]
     Dosage: 200 MG, UNK
  6. HYDROCODONE [Concomitant]
     Dosage: 300 MG, UNK
  7. ACETAMINOPHEN [Concomitant]

REACTIONS (7)
  - Drug ineffective [Unknown]
  - Mood altered [Unknown]
  - Chapped lips [Not Recovered/Not Resolved]
  - Cheilitis [Not Recovered/Not Resolved]
  - Dry mouth [Not Recovered/Not Resolved]
  - Stomatitis [Not Recovered/Not Resolved]
  - Fatigue [Unknown]
